FAERS Safety Report 18510795 (Version 1)
Quarter: 2020Q4

REPORT INFORMATION
  Report Type: Spontaneous
  Country: US (occurrence: US)
  Receive Date: 20201116
  Receipt Date: 20201116
  Transmission Date: 20210114
  Serious: No
  Sender: FDA-Public Use
  Company Number: None

PATIENT
  Age: 56 Year
  Sex: Male
  Weight: 189.45 kg

DRUGS (14)
  1. CLOPIDOGREL 75 MG TABLET 1 PO QD [Concomitant]
     Dates: start: 20131104
  2. TORSEMIDE 20 MG TABLET 3 PO QD [Concomitant]
     Dates: start: 20200730
  3. LEVOTHYROXINE 112 MCG TABLET 1 PO QAM [Concomitant]
     Dates: start: 20131104
  4. FARXIGA [Suspect]
     Active Substance: DAPAGLIFLOZIN PROPANEDIOL
     Indication: CARDIAC FAILURE CHRONIC
     Route: 048
     Dates: start: 20201023, end: 20201115
  5. SPIRONOLACTONE 25 MG TABLET 1 PO QD [Concomitant]
     Dates: start: 20200806
  6. CARVEDILOL 6.25 MG TABLET 1 PO BID [Concomitant]
     Dates: start: 20200515
  7. NITROSTAT 0.4 MG SL TABLET 1 Q 5 MIN PRN CP [Concomitant]
     Dates: start: 20180705
  8. ENTRESTO 24-26 MG TABLET 1 PO BID [Concomitant]
     Dates: start: 20180504
  9. ALLOPURINOL 100 MG TABLET 1 PO QD [Concomitant]
     Dates: start: 20180504
  10. VITAMIN C 250 MG TABLET 2 PO QD [Concomitant]
     Dates: start: 20180413
  11. FAMOTIDINE 20 MG TABLET 1 PO QD PRN [Concomitant]
     Dates: start: 20180504
  12. RIVAROXABAIN 20 MG TABLET 1 PO QD [Concomitant]
     Dates: start: 20180419
  13. CALCIUM CITRATE-VIT D 315-200 MG-IU TABLET 1 PO BID [Concomitant]
     Dates: start: 20180504
  14. MELATONIN 2.5 MG CHEW TABLET 1 PO QHS PRN [Concomitant]
     Dates: start: 20180523

REACTIONS (4)
  - Skin odour abnormal [None]
  - Pain [None]
  - Skin wound [None]
  - Fungal skin infection [None]

NARRATIVE: CASE EVENT DATE: 20201116
